FAERS Safety Report 21625012 (Version 1)
Quarter: 2022Q4

REPORT INFORMATION
  Report Type: Spontaneous
  Country: US (occurrence: US)
  Receive Date: 20221122
  Receipt Date: 20221122
  Transmission Date: 20230112
  Serious: Yes (Hospitalization, Other)
  Sender: FDA-Public Use
  Company Number: US-AUROBINDO-AUR-APL-2022-048874

PATIENT
  Age: 7 Year
  Sex: Male

DRUGS (2)
  1. DEXTROMETHORPHAN HBR AND DOXYLAMINE SUCCINATE [Suspect]
     Active Substance: DEXTROMETHORPHAN\DOXYLAMINE SUCCINATE
     Indication: Oropharyngeal pain
     Dosage: UNK
     Route: 065
  2. DIPHENHYDRAMINE [Concomitant]
     Active Substance: DIPHENHYDRAMINE
     Indication: Hypersensitivity
     Dosage: UNK
     Route: 065

REACTIONS (2)
  - Delirium [Recovering/Resolving]
  - Intentional product misuse [Unknown]
